FAERS Safety Report 9026664 (Version 2)
Quarter: 2013Q2

REPORT INFORMATION
  Report Type: Spontaneous
  Country: CA (occurrence: None)
  Receive Date: 20121231
  Receipt Date: 20130416
  Transmission Date: 20140414
  Serious: Yes (Life-Threatening)
  Sender: FDA-Public Use
  Company Number: AECAN201200555

PATIENT
  Age: 83 Year
  Sex: Female
  Weight: 52 kg

DRUGS (1)
  1. GAMUNEX [Suspect]
     Indication: SECONDARY IMMUNODEFICIENCY
     Route: 042
     Dates: start: 20121121

REACTIONS (15)
  - Transfusion-related acute lung injury [None]
  - Pyrexia [None]
  - Dyspnoea [None]
  - Wheezing [None]
  - Heart rate increased [None]
  - Blood pressure systolic increased [None]
  - Acute respiratory distress syndrome [None]
  - Oxygen saturation decreased [None]
  - PCO2 decreased [None]
  - PO2 decreased [None]
  - Blood bicarbonate decreased [None]
  - Carbon dioxide decreased [None]
  - Base excess decreased [None]
  - Transfusion-related circulatory overload [None]
  - Blood lactic acid increased [None]
